FAERS Safety Report 7619518-3 (Version None)
Quarter: 2011Q3

REPORT INFORMATION
  Report Type: 
  Country: None (occurrence: None)
  Receive Date: 20110719
  Receipt Date: 20110715
  Transmission Date: 20111222
  Serious: Yes (Life-Threatening, Hospitalization)
  Sender: FDA-Public Use
  Company Number: US-B.I. PHARMACEUTICALS,INC./RIDGEFIELD-2011-BP-13462BP

PATIENT
  Age: 68 Year
  Sex: Male
  Weight: 146.05 kg

DRUGS (12)
  1. PRADAXA [Suspect]
     Dosage: 300 MG
     Dates: start: 20101201, end: 20110501
  2. LIPITOR [Concomitant]
     Dosage: 10 MG
  3. SOTALOL HCL [Concomitant]
     Dosage: 160 MG
  4. FLOMAX [Concomitant]
     Dosage: 0.4 MG
  5. NEXIUM [Concomitant]
     Dosage: 40 MG
  6. LOPRESSOR [Concomitant]
     Dosage: 50 MG
  7. CYMBALTA [Concomitant]
     Dosage: 60 MG
  8. TRICOR [Concomitant]
     Dosage: 145 MG
  9. ALBUTEROL SULFATE AUTOHALER [Concomitant]
  10. METFORMIN HCL [Concomitant]
     Dosage: 1000 MG
  11. SINGULAIR [Concomitant]
     Dosage: 10 MG
  12. ADVAIR DISKUS 100/50 [Concomitant]

REACTIONS (3)
  - THROMBOSIS [None]
  - PULMONARY EMBOLISM [None]
  - DYSPNOEA [None]
